FAERS Safety Report 22122891 (Version 2)
Quarter: 2023Q1

REPORT INFORMATION
  Report Type: Spontaneous
  Country: US (occurrence: US)
  Receive Date: 20230322
  Receipt Date: 20230329
  Transmission Date: 20230417
  Serious: No
  Sender: FDA-Public Use
  Company Number: US-LUPIN PHARMACEUTICALS INC.-2023-02185

PATIENT

DRUGS (1)
  1. QUINAPRIL [Suspect]
     Active Substance: QUINAPRIL
     Indication: Product used for unknown indication
     Dosage: 1 DOSAGE FORM, QD, AT NIGHT BEFORE BED
     Route: 065

REACTIONS (3)
  - Pruritus [Unknown]
  - Hypersensitivity [Unknown]
  - Rash [Unknown]
